FAERS Safety Report 17585225 (Version 1)
Quarter: 2020Q1

REPORT INFORMATION
  Report Type: Spontaneous
  Country: US (occurrence: US)
  Receive Date: 20200326
  Receipt Date: 20200326
  Transmission Date: 20200409
  Serious: Yes (Hospitalization)
  Sender: FDA-Public Use
  Company Number: None

PATIENT
  Sex: Male

DRUGS (9)
  1. REPATHA [Suspect]
     Active Substance: EVOLOCUMAB
     Indication: HYPERCHOLESTEROLAEMIA
     Dosage: ?          OTHER FREQUENCY:EVERY 14 DAYS;?
     Route: 058
     Dates: start: 20180127
  2. GABAPENTIN. [Concomitant]
     Active Substance: GABAPENTIN
  3. BENZONATATE. [Concomitant]
     Active Substance: BENZONATATE
  4. WARFARIN [Concomitant]
     Active Substance: WARFARIN
  5. PANTOPRAZOLE [Concomitant]
     Active Substance: PANTOPRAZOLE
  6. LOSARTAN. [Concomitant]
     Active Substance: LOSARTAN
  7. GLIMEPIRIDE. [Concomitant]
     Active Substance: GLIMEPIRIDE
  8. CHLORHEX [Concomitant]
     Active Substance: CHLORHEXIDINE GLUCONATE
  9. ISOSORB [Concomitant]

REACTIONS (7)
  - Nasopharyngitis [None]
  - Rhinorrhoea [None]
  - Blood glucose fluctuation [None]
  - Nausea [None]
  - Pain [None]
  - Therapy cessation [None]
  - Lacrimation increased [None]
